FAERS Safety Report 20301777 (Version 4)
Quarter: 2022Q1

REPORT INFORMATION
  Report Type: Report from Study
  Country: CA (occurrence: CA)
  Receive Date: 20220105
  Receipt Date: 20220127
  Transmission Date: 20220424
  Serious: Yes (Hospitalization, Other)
  Sender: FDA-Public Use
  Company Number: CA-JNJFOC-20211156001

PATIENT
  Age: 45 Year
  Sex: Male
  Weight: 117.1 kg

DRUGS (1)
  1. REMICADE [Suspect]
     Active Substance: INFLIXIMAB
     Indication: Crohn^s disease
     Route: 042
     Dates: start: 20091216

REACTIONS (8)
  - Strangulated hernia [Recovered/Resolved]
  - Intestinal resection [Unknown]
  - Malaise [Not Recovered/Not Resolved]
  - COVID-19 [Unknown]
  - Chills [Not Recovered/Not Resolved]
  - Night sweats [Not Recovered/Not Resolved]
  - Fatigue [Unknown]
  - Post procedural infection [Recovered/Resolved]

NARRATIVE: CASE EVENT DATE: 20210101
